FAERS Safety Report 8376274-1 (Version None)
Quarter: 2012Q1

REPORT INFORMATION
  Report Type: 
  Country: None (occurrence: None)
  Receive Date: 20120323
  Receipt Date: 20110727
  Transmission Date: 20120608
  Serious: Yes (Hospitalization, Other)
  Sender: FDA-Public Use
  Company Number: 163-21880-11060512

PATIENT
  Age: 63 Year
  Sex: Female
  Weight: 100.6985 kg

DRUGS (23)
  1. BIAXIN [Concomitant]
  2. COUMADIN [Concomitant]
  3. FLEXERIL [Concomitant]
  4. DOXIL [Suspect]
     Indication: PRODUCT USED FOR UNKNOWN INDICATION
     Dosage: 40 MG/M2, IV
     Route: 042
  5. COLACE (DOCUSATE SODIUM) [Concomitant]
  6. LIDODERM [Concomitant]
  7. PRILOSEC [Concomitant]
  8. PROZAC [Concomitant]
  9. ARIXTRA [Concomitant]
  10. GABAPENTIN [Concomitant]
  11. VAGIFEM [Concomitant]
  12. VICODIN [Concomitant]
  13. ZOLEDRONIC ACID [Concomitant]
  14. HEPARIN [Concomitant]
  15. DEXAMETHASONE [Suspect]
     Indication: PRODUCT USED FOR UNKNOWN INDICATION
     Dosage: 20 MG, UT DICT AFTER CHEMO 1 WEEK LATER ; 40 MG
  16. TRAZODONE HCL [Concomitant]
  17. ZOFRAN [Concomitant]
  18. REVLIMID [Suspect]
     Indication: MULTIPLE MYELOMA
     Dosage: 25 MG, 1 IN 1 D, PO ; 10 MG, QD X 21 DAYS, PO ; 10 MG, 21 DAYS ON/7 DAYS OFF, PO
     Route: 048
     Dates: start: 20100401
  19. REVLIMID [Suspect]
     Indication: MULTIPLE MYELOMA
     Dosage: 25 MG, 1 IN 1 D, PO ; 10 MG, QD X 21 DAYS, PO ; 10 MG, 21 DAYS ON/7 DAYS OFF, PO
     Route: 048
     Dates: start: 20101216
  20. REVLIMID [Suspect]
     Indication: MULTIPLE MYELOMA
     Dosage: 25 MG, 1 IN 1 D, PO ; 10 MG, QD X 21 DAYS, PO ; 10 MG, 21 DAYS ON/7 DAYS OFF, PO
     Route: 048
     Dates: start: 20100701
  21. ALBUTEROL SULFATE [Concomitant]
  22. DILAUDID [Concomitant]
  23. LORAZEPAM [Concomitant]

REACTIONS (6)
  - PULMONARY EMBOLISM [None]
  - CHEST PAIN [None]
  - DEEP VEIN THROMBOSIS [None]
  - PNEUMONITIS [None]
  - MULTIPLE MYELOMA [None]
  - NEUROTOXICITY [None]
